FAERS Safety Report 8362368 (Version 3)
Quarter: 2012Q4

REPORT INFORMATION
  Report Type: 
  Country: US (occurrence: US)
  Receive Date: 20120130
  Receipt Date: 20121029
  Transmission Date: 20130627
  Serious: Yes (Other)
  Sender: FDA-Public Use
  Company Number: US-ROCHE-1034505

PATIENT
  Age: 25 Year
  Sex: Female

DRUGS (6)
  1. ACCUTANE [Suspect]
     Indication: ACNE
     Route: 065
     Dates: start: 19920828
  2. LOESTRIN [Concomitant]
  3. LOPROX [Concomitant]
  4. CLINDAMYCIN [Concomitant]
  5. MICROGESTIN [Concomitant]
  6. AMOXICILLIN [Concomitant]

REACTIONS (4)
  - Inflammatory bowel disease [Unknown]
  - Anxiety [Unknown]
  - Colitis ulcerative [Unknown]
  - Acne [Unknown]
